FAERS Safety Report 4437680-0 (Version None)
Quarter: 2004Q3

REPORT INFORMATION
  Report Type: 
  Country: None (occurrence: None)
  Receive Date: 20040831
  Receipt Date: 20031024
  Transmission Date: 20050211
  Serious: No
  Sender: FDA-Public Use
  Company Number: US-GLAXOSMITHKLINE-A0431950A

PATIENT
  Age: 73 Year
  Sex: Female

DRUGS (5)
  1. ZOVIRAX [Suspect]
     Indication: HERPES ZOSTER
     Route: 061
     Dates: start: 20030902, end: 20031015
  2. LIDEX [Suspect]
     Route: 065
     Dates: end: 20031015
  3. FAMVIR [Concomitant]
     Indication: HERPES ZOSTER
     Dosage: 500MG THREE TIMES PER DAY
     Route: 048
     Dates: start: 20030902, end: 20030909
  4. KEFLEX [Concomitant]
     Indication: HERPES ZOSTER
     Route: 065
  5. BACTROBAN [Concomitant]
     Indication: HERPES ZOSTER
     Route: 061
     Dates: start: 20030902

REACTIONS (6)
  - BURNING SENSATION [None]
  - DRUG INEFFECTIVE [None]
  - ERYTHEMA [None]
  - POST HERPETIC NEURALGIA [None]
  - SCAR [None]
  - SEBORRHOEIC DERMATITIS [None]
